FAERS Safety Report 5271388-7 (Version None)
Quarter: 2007Q1

REPORT INFORMATION
  Report Type: 
  Country: None (occurrence: None)
  Receive Date: 20070321
  Receipt Date: 20070309
  Transmission Date: 20070707
  Serious: Yes (Other)
  Sender: FDA-Public Use
  Company Number: CH-ELI_LILLY_AND_COMPANY-CH200703000010

PATIENT
  Sex: Male

DRUGS (2)
  1. CYMBALTA [Suspect]
     Indication: DEPRESSION
     Dosage: 60 MG, DAILY (1/D)
     Route: 048
     Dates: start: 20070115, end: 20070213
  2. METADON [Concomitant]
     Indication: DRUG DEPENDENCE
     Dosage: 17.5 MG, DAILY (1/D)
     Route: 048
     Dates: start: 20041001

REACTIONS (4)
  - DYSURIA [None]
  - NIGHT SWEATS [None]
  - PETECHIAE [None]
  - THROMBOCYTOPENIA [None]
